FAERS Safety Report 6645887-7 (Version None)
Quarter: 2010Q1

REPORT INFORMATION
  Report Type: 
  Country: None (occurrence: None)
  Receive Date: 20100323
  Receipt Date: 20100311
  Transmission Date: 20100710
  Serious: Yes (Other)
  Sender: FDA-Public Use
  Company Number: PHHY2010AU15187

PATIENT
  Sex: Female

DRUGS (3)
  1. CLOZARIL [Suspect]
     Indication: SCHIZOPHRENIA
     Dosage: UNK
     Dates: start: 19980731, end: 20100127
  2. ZYPREXA [Concomitant]
  3. RISPERIDONE [Concomitant]

REACTIONS (7)
  - ANXIETY [None]
  - DISORIENTATION [None]
  - MALAISE [None]
  - MENTAL IMPAIRMENT [None]
  - NEUTROPENIA [None]
  - PSYCHOTIC DISORDER [None]
  - WHITE BLOOD CELL COUNT DECREASED [None]
